FAERS Safety Report 17453748 (Version 1)
Quarter: 2020Q1

REPORT INFORMATION
  Report Type: Spontaneous
  Country: US (occurrence: US)
  Receive Date: 20200224
  Receipt Date: 20200224
  Transmission Date: 20200409
  Serious: Yes (Other)
  Sender: FDA-Public Use
  Company Number: US-GILEAD-2020-0452179

PATIENT
  Age: 68 Year
  Sex: Female
  Weight: 49.9 kg

DRUGS (1)
  1. YESCARTA [Suspect]
     Active Substance: AXICABTAGENE CILOLEUCEL
     Indication: DIFFUSE LARGE B-CELL LYMPHOMA
     Dosage: SINGLE
     Route: 042
     Dates: start: 20191211, end: 20191211

REACTIONS (1)
  - CAR T-cell-related encephalopathy syndrome [Recovered/Resolved]

NARRATIVE: CASE EVENT DATE: 20191212
